FAERS Safety Report 5204304-4 (Version None)
Quarter: 2007Q1

REPORT INFORMATION
  Report Type: 
  Country: None (occurrence: None)
  Receive Date: 20070110
  Receipt Date: 20060207
  Transmission Date: 20070707
  Serious: No
  Sender: FDA-Public Use
  Company Number: US-BRISTOL-MYERS SQUIBB COMPANY-13273974

PATIENT
  Sex: Male
  Weight: 82 kg

DRUGS (3)
  1. ABILIFY [Suspect]
     Indication: SCHIZOPHRENIA
     Route: 048
     Dates: start: 20050401
  2. SEROQUEL [Concomitant]
  3. LEXAPRO [Concomitant]

REACTIONS (2)
  - HALLUCINATION, AUDITORY [None]
  - NIGHTMARE [None]
